FAERS Safety Report 4677489-6 (Version None)
Quarter: 2005Q2

REPORT INFORMATION
  Report Type: 
  Country: None (occurrence: None)
  Receive Date: 20050531
  Receipt Date: 20050523
  Transmission Date: 20051028
  Serious: Yes (Other)
  Sender: FDA-Public Use
  Company Number: PHEH2005US05847

PATIENT
  Age: 76 Year
  Sex: Male

DRUGS (2)
  1. AREDIA [Suspect]
     Indication: PROSTATE CANCER
  2. ZOMETA [Suspect]
     Indication: PROSTATE CANCER

REACTIONS (4)
  - ASEPTIC NECROSIS BONE [None]
  - JAW OPERATION [None]
  - PATHOLOGICAL FRACTURE [None]
  - TOOTH EXTRACTION [None]
